FAERS Safety Report 15892632 (Version 1)
Quarter: 2019Q1

REPORT INFORMATION
  Report Type: Report from Study
  Country: US (occurrence: US)
  Receive Date: 20190130
  Receipt Date: 20190130
  Transmission Date: 20190417
  Serious: No
  Sender: FDA-Public Use
  Company Number: US-EXELIXIS-CABO-18015399

PATIENT
  Sex: Female

DRUGS (1)
  1. CABOMETYX [Suspect]
     Active Substance: CABOZANTINIB S-MALATE
     Indication: MESOTHELIOMA
     Dosage: 40 MG, QD (EMPTY STOMACH)
     Dates: start: 20180711, end: 20180828

REACTIONS (10)
  - Pulmonary embolism [Unknown]
  - Dysphonia [Unknown]
  - Decreased appetite [Unknown]
  - Malignant neoplasm progression [Unknown]
  - Fatigue [Unknown]
  - Weight decreased [Unknown]
  - Hypersomnia [Unknown]
  - Alopecia [Unknown]
  - Constipation [Unknown]
  - Muscle spasms [Unknown]

NARRATIVE: CASE EVENT DATE: 2018
